FAERS Safety Report 22070529 (Version 2)
Quarter: 2023Q2

REPORT INFORMATION
  Report Type: Report from Study
  Country: US (occurrence: US)
  Receive Date: 20230307
  Receipt Date: 20230407
  Transmission Date: 20230722
  Serious: Yes (Other)
  Sender: FDA-Public Use
  Company Number: US-TAKEDA-2023TUS021885

PATIENT
  Sex: Female
  Weight: 78 kg

DRUGS (1)
  1. LANADELUMAB [Suspect]
     Active Substance: LANADELUMAB
     Indication: Hereditary angioedema with normal C1 esterase inhibitor
     Dosage: 300 MILLIGRAM
     Route: 058

REACTIONS (3)
  - Seizure [Unknown]
  - Hereditary angioedema [Unknown]
  - Blood glucose increased [Unknown]
